FAERS Safety Report 15634420 (Version 1)
Quarter: 2018Q4

REPORT INFORMATION
  Report Type: Spontaneous
  Country: US (occurrence: US)
  Receive Date: 20181119
  Receipt Date: 20181119
  Transmission Date: 20190205
  Serious: Yes (Hospitalization)
  Sender: FDA-Public Use
  Company Number: US-ELI_LILLY_AND_COMPANY-US201811006998

PATIENT
  Sex: Female

DRUGS (1)
  1. LARTRUVO [Suspect]
     Active Substance: OLARATUMAB
     Indication: SOFT TISSUE SARCOMA
     Dosage: UNK, UNKNOWN
     Route: 042

REACTIONS (2)
  - Arthropod bite [Recovered/Resolved]
  - Infusion related reaction [Recovered/Resolved]
